FAERS Safety Report 8520638-X (Version None)
Quarter: 2012Q3

REPORT INFORMATION
  Report Type: 
  Country: None (occurrence: None)
  Receive Date: 20120713
  Receipt Date: 20120713
  Transmission Date: 20120928
  Serious: Yes (Other)
  Sender: FDA-Public Use
  Company Number: None

PATIENT
  Age: 43 Year
  Sex: Female
  Weight: 47.6277 kg

DRUGS (1)
  1. CLINDAMYCIN HYDROCHLORIDE [Suspect]
     Indication: INFECTION
     Dosage: 300 MG 4 TIMES A DAY
     Dates: start: 20120618, end: 20120620

REACTIONS (4)
  - MALIGNANT DYSPHAGIA [None]
  - EATING DISORDER [None]
  - ABDOMINAL DISCOMFORT [None]
  - OESOPHAGEAL PAIN [None]
